FAERS Safety Report 15857393 (Version 1)
Quarter: 2019Q1

REPORT INFORMATION
  Report Type: Spontaneous
  Country: US (occurrence: US)
  Receive Date: 20190122
  Receipt Date: 20190122
  Transmission Date: 20190417
  Serious: No
  Sender: FDA-Public Use
  Company Number: None

PATIENT
  Sex: Male

DRUGS (1)
  1. DUTASTERIDE 0.5MG OR CAPS [Suspect]
     Active Substance: DUTASTERIDE

REACTIONS (2)
  - Laboratory test abnormal [None]
  - Drug ineffective [None]
